FAERS Safety Report 11117365 (Version 3)
Quarter: 2015Q3

REPORT INFORMATION
  Report Type: Spontaneous
  Country: ES (occurrence: ES)
  Receive Date: 20150516
  Receipt Date: 20150820
  Transmission Date: 20151125
  Serious: Yes (Other)
  Sender: FDA-Public Use
  Company Number: ALCN2015ES003004

PATIENT
  Age: 86 Year
  Sex: Male

DRUGS (4)
  1. COLIRCUSI ANESTISICO DOBLE [Suspect]
     Active Substance: BENOXINATE HYDROCHLORIDE\TETRACAINE HYDROCHLORIDE
     Indication: CATARACT OPERATION
     Dosage: UNK
     Route: 047
     Dates: start: 20150505, end: 20150505
  2. BSS [Suspect]
     Active Substance: CALCIUM CHLORIDE\MAGNESIUM CHLORIDE\POTASSIUM CHLORIDE\SODIUM ACETATE\SODIUM CHLORIDE\SODIUM CITRATE
     Indication: CATARACT OPERATION
     Dosage: 1 DF, ONCE/SINGLE
     Route: 031
     Dates: start: 20150505, end: 20150505
  3. LIDOCAINE. [Suspect]
     Active Substance: LIDOCAINE
     Indication: CATARACT OPERATION
     Dosage: UNK
     Route: 065
     Dates: start: 20150505, end: 20150505
  4. VIGAMOX [Suspect]
     Active Substance: MOXIFLOXACIN HYDROCHLORIDE
     Indication: PREOPERATIVE CARE
     Dosage: UNK
     Route: 047

REACTIONS (1)
  - Toxic anterior segment syndrome [Recovering/Resolving]

NARRATIVE: CASE EVENT DATE: 20150506
